FAERS Safety Report 8762117 (Version 3)
Quarter: 2012Q4

REPORT INFORMATION
  Report Type: 
  Country: BE (occurrence: BE)
  Receive Date: 20120830
  Receipt Date: 20120920
  Transmission Date: 20130627
  Serious: Yes (Other)
  Sender: FDA-Public Use
  Company Number: BE-NOVOPROD-358808

PATIENT
  Age: 59 Year
  Sex: Female
  Weight: 70 kg

DRUGS (7)
  1. VICTOZA [Suspect]
     Indication: TYPE 2 DIABETES MELLITUS
     Dosage: 0.6 mg, qd
     Route: 065
     Dates: start: 201006
  2. VICTOZA [Suspect]
     Dosage: 1.2 mg, qd
     Route: 065
  3. VICTOZA [Suspect]
     Dosage: 1.8 mg, qd
     Route: 065
  4. GLUCOPHAGE [Concomitant]
     Dosage: 3 /day
  5. DAONIL [Concomitant]
  6. CRESTOR [Concomitant]
  7. UNI DIAMICRON [Concomitant]

REACTIONS (1)
  - Adenocarcinoma pancreas [Not Recovered/Not Resolved]
